FAERS Safety Report 4937511-6 (Version None)
Quarter: 2006Q1

REPORT INFORMATION
  Report Type: 
  Country: None (occurrence: None)
  Receive Date: 20060306
  Receipt Date: 20060222
  Transmission Date: 20060701
  Serious: Yes (Other)
  Sender: FDA-Public Use
  Company Number: 2006029354

PATIENT
  Age: 49 Year
  Sex: Female
  Weight: 81.6475 kg

DRUGS (7)
  1. ZOLOFT [Suspect]
     Indication: DEPRESSION
     Dosage: 50 MG (50 MG, 1 IN 1 D),
     Dates: start: 19970501
  2. ZOLOFT [Suspect]
     Indication: PANIC ATTACK
     Dosage: 50 MG (50 MG, 1 IN 1 D),
     Dates: start: 19970501
  3. XANAX [Suspect]
     Indication: PANIC ATTACK
     Dosage: 3 MG (1 MG, 3 IN 1 D),
     Dates: start: 19970101
  4. CORTEF [Suspect]
     Indication: THYROID DISORDER
     Dosage: 20 MG (20 MG, 1 IN 1 D),
     Dates: start: 20040101
  5. SOMAVERT [Suspect]
     Indication: BLOOD GROWTH HORMONE INCREASED
     Dosage: 15 MG (15 MG, 1 IN 1 D), SUBCUTANEOUS
     Route: 058
     Dates: start: 20040101
  6. CALAN [Concomitant]
  7. ZOCOR [Concomitant]

REACTIONS (8)
  - BLOOD GROWTH HORMONE INCREASED [None]
  - BLOOD PRESSURE INCREASED [None]
  - CEREBROVASCULAR ACCIDENT [None]
  - DIABETES MELLITUS [None]
  - PANIC ATTACK [None]
  - PITUITARY TUMOUR [None]
  - THYROID DISORDER [None]
  - URINARY TRACT INFECTION [None]
